FAERS Safety Report 25094690 (Version 2)
Quarter: 2025Q2

REPORT INFORMATION
  Report Type: Spontaneous
  Country: JP (occurrence: JP)
  Receive Date: 20250319
  Receipt Date: 20250625
  Transmission Date: 20250716
  Serious: Yes (Death)
  Sender: MERCK SHARP & DOHME LLC
  Company Number: JP-009507513-2263498

PATIENT
  Age: 80 Year
  Sex: Male
  Weight: 55.7 kg

DRUGS (10)
  1. STROMECTOL [Suspect]
     Active Substance: IVERMECTIN
     Indication: Scabies
     Route: 048
     Dates: start: 20200226, end: 20200227
  2. STROMECTOL [Suspect]
     Active Substance: IVERMECTIN
     Indication: Scabies
     Route: 048
     Dates: start: 20200218, end: 20200220
  3. MEDROL [Concomitant]
     Active Substance: METHYLPREDNISOLONE
     Route: 048
  4. THYRADIN-S TABLETS [Concomitant]
     Route: 048
  5. EURAX [Suspect]
     Active Substance: CROTAMITON
     Indication: Scabies
     Route: 061
     Dates: start: 20200218, end: 20200311
  6. Takecab Tablet [Concomitant]
     Route: 048
     Dates: end: 20200221
  7. PROGRAF [Concomitant]
     Active Substance: TACROLIMUS
     Route: 048
     Dates: end: 20200217
  8. Itrizole capsules [Concomitant]
     Route: 048
     Dates: end: 20200212
  9. Erythrocin Tablets [Concomitant]
     Route: 048
     Dates: end: 20200221
  10. Daiphen Tablets [Concomitant]
     Route: 048
     Dates: end: 20200221

REACTIONS (1)
  - Bronchopulmonary aspergillosis [Fatal]

NARRATIVE: CASE EVENT DATE: 20200101
